FAERS Safety Report 19715503 (Version 1)
Quarter: 2021Q3

REPORT INFORMATION
  Report Type: Spontaneous
  Country: US (occurrence: US)
  Receive Date: 20210818
  Receipt Date: 20210818
  Transmission Date: 20211014
  Serious: Yes (Hospitalization)
  Sender: FDA-Public Use
  Company Number: US-LUPIN PHARMACEUTICALS INC.-2021-15032

PATIENT
  Sex: Female

DRUGS (2)
  1. RIFAMPIN. [Suspect]
     Active Substance: RIFAMPIN
     Indication: PROPHYLAXIS
     Dosage: UNK (CARDIAC IMPLANT POUCH   )
  2. MINOCYCLINE [Suspect]
     Active Substance: MINOCYCLINE HYDROCHLORIDE
     Indication: PROPHYLAXIS
     Dosage: UNK (CARDIAC IMPLANT POUCH   )

REACTIONS (2)
  - Implant site infection [Recovered/Resolved]
  - Hypersensitivity [Recovered/Resolved]
